FAERS Safety Report 17072573 (Version 1)
Quarter: 2019Q4

REPORT INFORMATION
  Report Type: Spontaneous
  Country: CA (occurrence: CA)
  Receive Date: 20191125
  Receipt Date: 20191125
  Transmission Date: 20200122
  Serious: Yes (Life-Threatening, Hospitalization, Other)
  Sender: FDA-Public Use
  Company Number: CA-TEVA-2019-CA-1140196

PATIENT
  Age: 67 Year
  Sex: Male

DRUGS (4)
  1. AMOXICILLIN. [Suspect]
     Active Substance: AMOXICILLIN
     Indication: UPPER RESPIRATORY TRACT INFECTION
     Dosage: 1500 MILLIGRAM DAILY;
     Route: 048
  2. TADALAFIL. [Concomitant]
     Active Substance: TADALAFIL
  3. ROSUVASTATIN. [Concomitant]
     Active Substance: ROSUVASTATIN
  4. ZOPICLONE [Concomitant]
     Active Substance: ZOPICLONE

REACTIONS (5)
  - Tubulointerstitial nephritis [Unknown]
  - Drug reaction with eosinophilia and systemic symptoms [Unknown]
  - Pancytopenia [Unknown]
  - Acute kidney injury [Unknown]
  - Dialysis [Unknown]
